FAERS Safety Report 9781484 (Version 1)
Quarter: 2013Q4

REPORT INFORMATION
  Report Type: Spontaneous
  Country: US (occurrence: US)
  Receive Date: 20131224
  Receipt Date: 20131224
  Transmission Date: 20140711
  Serious: No
  Sender: FDA-Public Use
  Company Number: US-BIOGENIDEC-2013BI121652

PATIENT
  Age: 60 Year
  Sex: Female
  Weight: 64 kg

DRUGS (17)
  1. TECFIDERA [Suspect]
     Indication: MULTIPLE SCLEROSIS
     Route: 048
     Dates: start: 201309
  2. NITROFURANTOIN [Concomitant]
  3. ZOCOR [Concomitant]
  4. ZOLOFT [Concomitant]
  5. NEURONTIN [Concomitant]
  6. CIPRO [Concomitant]
  7. METFORMIN [Concomitant]
  8. VALIUM [Concomitant]
  9. BACLOFEN [Concomitant]
  10. FLUCONAZOLE [Concomitant]
  11. ZANTAC [Concomitant]
  12. LORTAB [Concomitant]
  13. CALCIUM + D3 [Concomitant]
  14. FOLBEE [Concomitant]
  15. FIORICET [Concomitant]
  16. COLACE [Concomitant]
  17. VITAMIN D [Concomitant]

REACTIONS (3)
  - Sciatica [Not Recovered/Not Resolved]
  - Pain in extremity [Not Recovered/Not Resolved]
  - Back pain [Not Recovered/Not Resolved]
